FAERS Safety Report 17062693 (Version 3)
Quarter: 2020Q4

REPORT INFORMATION
  Report Type: Spontaneous
  Country: IT (occurrence: IT)
  Receive Date: 20191122
  Receipt Date: 20201209
  Transmission Date: 20210113
  Serious: Yes (Life-Threatening, Other)
  Sender: FDA-Public Use
  Company Number: IT-JAZZ-2019-IT-015841

PATIENT
  Age: 37 Year
  Sex: Female

DRUGS (3)
  1. XYREM [Suspect]
     Active Substance: SODIUM OXYBATE
     Dosage: 180 MILLILITER
     Route: 048
  2. XYREM [Suspect]
     Active Substance: SODIUM OXYBATE
     Indication: ALCOHOL DETOXIFICATION
     Dosage: 1 DOSAGE FORM
     Route: 048
     Dates: start: 20191105, end: 20191105
  3. VALIUM [Suspect]
     Active Substance: DIAZEPAM
     Indication: ANXIETY
     Dosage: 70 GTT DROPS (1/12 MILLILITER)
     Route: 048
     Dates: start: 20191105, end: 20191105

REACTIONS (5)
  - Depression [Unknown]
  - Off label use [Unknown]
  - Alkalosis [Unknown]
  - Sopor [Recovering/Resolving]
  - Drug abuse [Recovering/Resolving]

NARRATIVE: CASE EVENT DATE: 20191105
